FAERS Safety Report 8501047-6 (Version None)
Quarter: 2012Q2

REPORT INFORMATION
  Report Type: 
  Country: None (occurrence: None)
  Receive Date: 20120405
  Receipt Date: 20110214
  Transmission Date: 20120825
  Serious: Yes (Other)
  Sender: FDA-Public Use
  Company Number: PHHY2011US14640

PATIENT

DRUGS (4)
  1. VITAMIN K2 (MENAQUINONE) [Concomitant]
  2. VITAMIN D [Concomitant]
  3. CALCIUM CARBONATE [Concomitant]
  4. RECLAST [Suspect]
     Indication: OSTEOPOROSIS
     Dosage: UNK, INFUSION
     Dates: start: 20090601

REACTIONS (4)
  - EAR PAIN [None]
  - PAIN IN JAW [None]
  - JAW DISORDER [None]
  - IRITIS [None]
